FAERS Safety Report 18343803 (Version 1)
Quarter: 2020Q4

REPORT INFORMATION
  Report Type: Spontaneous
  Country: US (occurrence: US)
  Receive Date: 20201002
  Receipt Date: 20201002
  Transmission Date: 20210114
  Serious: Yes (Other)
  Sender: FDA-Public Use
  Company Number: None

PATIENT
  Age: 47 Year
  Sex: 0
  Weight: 66.22 kg

DRUGS (3)
  1. PREGABALIN  150MG [Suspect]
     Active Substance: PREGABALIN
     Indication: MULTIPLE SCLEROSIS
     Dates: start: 20190912
  2. PREGABALIN  150MG [Suspect]
     Active Substance: PREGABALIN
     Indication: PAIN
     Dates: start: 20190912
  3. PREGABALIN  150MG [Suspect]
     Active Substance: PREGABALIN
     Indication: PAIN IN EXTREMITY
     Dates: start: 20190912

REACTIONS (2)
  - Pain [None]
  - Drug ineffective [None]

NARRATIVE: CASE EVENT DATE: 20190912
